FAERS Safety Report 21257603 (Version 1)
Quarter: 2022Q3

REPORT INFORMATION
  Report Type: Spontaneous
  Country: US (occurrence: None)
  Receive Date: 20220826
  Receipt Date: 20220826
  Transmission Date: 20221026
  Serious: No
  Sender: FDA-Public Use
  Company Number: US-Orexo US, Inc.-ORE202205-000017

PATIENT
  Age: 52 Year
  Sex: Female
  Weight: 87.09 kg

DRUGS (4)
  1. ZUBSOLV [Suspect]
     Active Substance: BUPRENORPHINE HYDROCHLORIDE\NALOXONE HYDROCHLORIDE
     Indication: Procedural pain
     Dosage: DOSE: UNKNOWN, TOOK ONLY ONE PILL (TINY WHITE PILL)
     Dates: start: 20220512, end: 20220512
  2. METHADONE [Concomitant]
     Active Substance: METHADONE HYDROCHLORIDE
     Dosage: UNKNOWN
  3. AMBIEN [Concomitant]
     Active Substance: ZOLPIDEM TARTRATE
  4. PLAVIX [Concomitant]
     Active Substance: CLOPIDOGREL BISULFATE

REACTIONS (10)
  - Fatigue [Not Recovered/Not Resolved]
  - Formication [Recovered/Resolved]
  - Genital pain [Recovered/Resolved]
  - Hallucination [Recovered/Resolved]
  - Myalgia [Not Recovered/Not Resolved]
  - Dyspnoea [Recovered/Resolved]
  - Withdrawal syndrome [Recovered/Resolved]
  - Chills [Recovered/Resolved]
  - Prescription drug used without a prescription [Unknown]
  - Drug ineffective for unapproved indication [Unknown]

NARRATIVE: CASE EVENT DATE: 20220501
